FAERS Safety Report 14208472 (Version 28)
Quarter: 2018Q4

REPORT INFORMATION
  Report Type: Spontaneous
  Country: FR (occurrence: FR)
  Receive Date: 20171121
  Receipt Date: 20181129
  Transmission Date: 20190204
  Serious: Yes (Death, Life-Threatening, Hospitalization, Other)
  Sender: FDA-Public Use
  Company Number: FR-PFIZER INC-2017488204

PATIENT
  Age: 80 Year
  Sex: Female
  Weight: 50 kg

DRUGS (23)
  1. CALCIDOSE [CALCIUM CARBONATE;COLECALCIFEROL] [Suspect]
     Active Substance: CALCIUM CARBONATE\CHOLECALCIFEROL
     Dosage: 1 DF, DAILY(1 DF=1 SACHET)
     Route: 040
     Dates: start: 20170911, end: 20170911
  2. METHOTREXATE. [Concomitant]
     Active Substance: METHOTREXATE
     Dosage: 0.3 MG/KG, QWK (IN COMBINATION WITH THREE CYCLES OF IMMUNOGLOBULINS)
     Route: 065
     Dates: start: 20170801
  3. LASIX [Suspect]
     Active Substance: FUROSEMIDE
     Indication: CARDIAC FAILURE
     Dosage: 20 MG, QD (1 GRINDED TABLET)
     Route: 042
     Dates: start: 20170911, end: 20170911
  4. LEVOTHYROX [Suspect]
     Active Substance: LEVOTHYROXINE
     Indication: HYPOTHYROIDISM
     Dosage: 1 DF, QD(1 GRINDED TABLET)
     Route: 048
  5. CORDARONE [Suspect]
     Active Substance: AMIODARONE HYDROCHLORIDE
     Indication: ARRHYTHMIA
     Dosage: 1 DF, QD (BREAKABLE TABLET, 1 GRINDED TABLET   )
     Route: 048
  6. FUROSEMIDE ARROW [Suspect]
     Active Substance: FUROSEMIDE
     Indication: CARDIAC FAILURE
     Dosage: 20 MG, QD
     Route: 048
     Dates: start: 20170911, end: 20170911
  7. LEVOTHYROX [Suspect]
     Active Substance: LEVOTHYROXINE
     Dosage: 175 ?G, QD (1 GRINDED TABLET)
     Route: 040
     Dates: start: 20170911, end: 20170911
  8. ELIQUIS [Suspect]
     Active Substance: APIXABAN
     Dosage: 1 DF= 1 T, INTERVAL 1 DAY
     Route: 040
     Dates: start: 20170911, end: 20170911
  9. CORDARONE [Suspect]
     Active Substance: AMIODARONE HYDROCHLORIDE
     Dosage: 1 DF= 1 T, INTERVAL 1 DAY
     Route: 040
     Dates: start: 20170911, end: 20170911
  10. CORDARONE [Suspect]
     Active Substance: AMIODARONE HYDROCHLORIDE
     Dosage: UNK
  11. PARACETAMOL [Suspect]
     Active Substance: ACETAMINOPHEN
     Dosage: 2 DF, 1X/DAY (1 DF=500MG CAPSULE)
     Route: 040
     Dates: start: 20170911, end: 20170911
  12. PREDNISONE ARROW [Suspect]
     Active Substance: PREDNISONE
     Dosage: 45 MG, INTERVAL 1 DAY
     Route: 040
     Dates: start: 20170911, end: 20170911
  13. CALCIUM CARBONATE W/COLECALCIFEROL [Suspect]
     Active Substance: CALCIUM CARBONATE\CHOLECALCIFEROL
     Indication: OSTEOPOROSIS PROPHYLAXIS
     Dosage: 1 DF, QD
     Route: 040
     Dates: start: 20170911, end: 20170911
  14. METHOTREXATE. [Concomitant]
     Active Substance: METHOTREXATE
     Indication: NEOPLASM
     Dosage: 0.3 MG/KG, QWK (IN COMBINATION WITH THREE CYCLES OF IMMUNOGLOBULINS)
     Route: 065
     Dates: start: 20170911
  15. ARIPIPRAZOLE. [Concomitant]
     Active Substance: ARIPIPRAZOLE
     Dosage: UNK
     Route: 065
  16. ELIQUIS [Suspect]
     Active Substance: APIXABAN
     Indication: THROMBOSIS PROPHYLAXIS
     Dosage: 1 DF,QD
     Route: 048
     Dates: start: 20170911, end: 20170911
  17. PARACETAMOL [Suspect]
     Active Substance: ACETAMINOPHEN
     Indication: PAIN
     Dosage: 500 MG, 1X/DAY
     Route: 048
     Dates: start: 20170911, end: 20170911
  18. CALCIDOSE [CALCIUM CARBONATE;COLECALCIFEROL] [Suspect]
     Active Substance: CALCIUM CARBONATE\CHOLECALCIFEROL
     Indication: OSTEOPOROSIS PROPHYLAXIS
     Dosage: 1 DF, QD (1 DF=1 SACHET )
     Route: 048
  19. CORDARONE [Suspect]
     Active Substance: AMIODARONE HYDROCHLORIDE
     Dosage: 200 MG, BID
     Route: 040
     Dates: start: 20170911, end: 20170911
  20. PARACETAMOL [Suspect]
     Active Substance: ACETAMINOPHEN
     Dosage: 1 DF, QD(1 DF=500MG )
     Route: 040
     Dates: start: 20170911, end: 20170911
  21. LASIX [Suspect]
     Active Substance: FUROSEMIDE
     Indication: CARDIAC FAILURE
     Dosage: 20 MG, QD (GRINDED TABLET)
     Route: 048
  22. DIGOXINE NATIVELLE [Suspect]
     Active Substance: DIGOXIN
     Indication: ARRHYTHMIA
     Dosage: 1 DF, QD (1 GRINDED TABLET)
     Route: 040
     Dates: start: 20170911, end: 20170911
  23. PREDNISONE ARROW [Suspect]
     Active Substance: PREDNISONE
     Indication: DERMATOMYOSITIS
     Dosage: 1 DF, QD
     Route: 048

REACTIONS (3)
  - Off label use [Unknown]
  - Cardio-respiratory arrest [Fatal]
  - Incorrect route of product administration [Fatal]

NARRATIVE: CASE EVENT DATE: 20170911
